FAERS Safety Report 4803871-X (Version None)
Quarter: 2005Q4

REPORT INFORMATION
  Report Type: 
  Country: None (occurrence: None)
  Receive Date: 20051013
  Receipt Date: 20051003
  Transmission Date: 20060501
  Serious: Yes (Other)
  Sender: FDA-Public Use
  Company Number: 143315USA

PATIENT
  Sex: 0

DRUGS (2)
  1. MERCAPTOPURINE [Suspect]
     Indication: IRRITABLE BOWEL SYNDROME
     Dosage: 50 MILLIGRAM ORAL
     Route: 048
  2. AZATHIOPRINE [Suspect]
     Indication: IRRITABLE BOWEL SYNDROME
     Dosage: 50 MILLIGRAM ORAL
     Route: 048

REACTIONS (1)
  - LYMPHOMA [None]
